FAERS Safety Report 10662067 (Version 1)
Quarter: 2014Q4

REPORT INFORMATION
  Report Type: Spontaneous
  Country: US (occurrence: US)
  Receive Date: 20141218
  Receipt Date: 20141218
  Transmission Date: 20150529
  Serious: Yes (Death, Hospitalization)
  Sender: FDA-Public Use
  Company Number: US-NOVOPROD-432481

PATIENT
  Age: 86 Year
  Sex: Male
  Weight: 72.56 kg

DRUGS (1)
  1. NOVOLOG [Suspect]
     Active Substance: INSULIN ASPART
     Indication: TYPE 2 DIABETES MELLITUS
     Dosage: UNK UNK, TID
     Route: 058

REACTIONS (2)
  - Road traffic accident [Fatal]
  - Head injury [Fatal]

NARRATIVE: CASE EVENT DATE: 2009
